FAERS Safety Report 21453783 (Version 2)
Quarter: 2022Q4

REPORT INFORMATION
  Report Type: Spontaneous
  Country: BR (occurrence: BR)
  Receive Date: 20221013
  Receipt Date: 20221018
  Transmission Date: 20230113
  Serious: Yes (Other)
  Sender: FDA-Public Use
  Company Number: BR-PFIZER INC-202201221447

PATIENT
  Age: 76 Year
  Sex: Female

DRUGS (5)
  1. LORAZEPAM [Suspect]
     Active Substance: LORAZEPAM
     Indication: Cardiac operation
     Dosage: 1 MG, DAILY (AT NIGHT AROUND 22 H)
     Dates: start: 200405
  2. ATENOLOL [Concomitant]
     Active Substance: ATENOLOL
     Indication: Cardiac operation
     Dosage: UNK
  3. ATENOLOL [Concomitant]
     Active Substance: ATENOLOL
     Indication: Blood pressure abnormal
  4. SIMVASTATIN [Concomitant]
     Active Substance: SIMVASTATIN
     Indication: Cardiac operation
     Dosage: UNK
  5. SIMVASTATIN [Concomitant]
     Active Substance: SIMVASTATIN
     Indication: Blood cholesterol abnormal

REACTIONS (6)
  - Cardiac valve disease [Unknown]
  - Cardiac disorder [Unknown]
  - Weight decreased [Recovered/Resolved]
  - Stress [Unknown]
  - Intentional product misuse [Unknown]
  - Insomnia [Unknown]
